FAERS Safety Report 4878391-7 (Version None)
Quarter: 2005Q4

REPORT INFORMATION
  Report Type: 
  Country: None (occurrence: None)
  Receive Date: 20051212
  Receipt Date: 20050817
  Transmission Date: 20060501
  Serious: Yes (Hospitalization, Other)
  Sender: FDA-Public Use
  Company Number: 2005-01688

PATIENT
  Age: 78 Year
  Sex: Male
  Weight: 92.7 kg

DRUGS (5)
  1. VELCADE [Suspect]
     Indication: MULTIPLE MYELOMA
     Dosage: 1.30 MG/M2, 2/WEEK, IV BOLUS
     Route: 040
     Dates: start: 20050729, end: 20050804
  2. ARANESP [Concomitant]
  3. DARVOCET-N (PARACETAMOL, DEXTROPROPOXYPHENE NAPSILATE) [Concomitant]
  4. PRILOSEC [Concomitant]
  5. GLUCOCORTICOIDS [Concomitant]

REACTIONS (4)
  - CARDIAC FAILURE CONGESTIVE [None]
  - DYSPNOEA EXACERBATED [None]
  - OEDEMA [None]
  - PULMONARY OEDEMA [None]
